FAERS Safety Report 5751665-3 (Version None)
Quarter: 2008Q2

REPORT INFORMATION
  Report Type: 
  Country: None (occurrence: None)
  Receive Date: 20080528
  Receipt Date: 20080521
  Transmission Date: 20081010
  Serious: Yes (Other)
  Sender: FDA-Public Use
  Company Number: PHNU2008DE00443

PATIENT
  Sex: Female

DRUGS (4)
  1. DIOVAN [Suspect]
     Indication: HYPERTENSION
     Dosage: 160 MG/DAY
     Route: 048
     Dates: start: 20071001, end: 20071201
  2. TERBINAFINE HCL [Interacting]
     Route: 065
     Dates: start: 20071101, end: 20080101
  3. ARIMIDEX [Concomitant]
     Dosage: 100 MG/DAY
     Route: 065
     Dates: start: 20020101
  4. LEVOTHYROXINE SODIUM [Concomitant]

REACTIONS (4)
  - ARRHYTHMIA [None]
  - DRUG INTERACTION [None]
  - HEART RATE IRREGULAR [None]
  - TACHYCARDIA [None]
